FAERS Safety Report 5424813-2 (Version None)
Quarter: 2007Q3

REPORT INFORMATION
  Report Type: 
  Country: None (occurrence: None)
  Receive Date: 20070824
  Receipt Date: 20070822
  Transmission Date: 20080115
  Serious: Yes (Hospitalization)
  Sender: FDA-Public Use
  Company Number: JP-BRISTOL-MYERS SQUIBB COMPANY-13732060

PATIENT
  Age: 55 Year
  Sex: Female

DRUGS (2)
  1. PARAPLATIN [Suspect]
     Indication: TONGUE NEOPLASM MALIGNANT STAGE UNSPECIFIED
     Route: 013
     Dates: start: 20030612, end: 20030731
  2. 5-FU [Concomitant]
     Indication: TONGUE NEOPLASM MALIGNANT STAGE UNSPECIFIED
     Route: 041
     Dates: start: 20030612, end: 20030626

REACTIONS (1)
  - SKIN EXFOLIATION [None]
